FAERS Safety Report 19924128 (Version 6)
Quarter: 2021Q4

REPORT INFORMATION
  Report Type: Report from Study
  Country: SE (occurrence: SE)
  Receive Date: 20211005
  Receipt Date: 20211020
  Transmission Date: 20220303
  Serious: Yes (Death, Hospitalization)
  Sender: FDA-Public Use
  Company Number: SE-AMGEN-SWECT2021004894

PATIENT
  Age: 78 Year
  Sex: Male
  Weight: 102 kg

DRUGS (11)
  1. EVOLOCUMAB [Suspect]
     Active Substance: EVOLOCUMAB
     Indication: Dyslipidaemia
     Dosage: UNK MILLILITER
     Route: 058
     Dates: start: 20170531
  2. CRESTOR [Concomitant]
     Active Substance: ROSUVASTATIN CALCIUM
     Indication: Dyslipidaemia
     Dosage: 20 MILLIGRAM
     Dates: start: 20120227
  3. ASPIRIN [Concomitant]
     Active Substance: ASPIRIN
     Dosage: UNK
  4. WARFARIN [Concomitant]
     Active Substance: WARFARIN
     Dosage: UNK
  5. MAGNESIUM HYDROXIDE [Concomitant]
     Active Substance: MAGNESIUM HYDROXIDE
     Dosage: 250 MILLIGRAM
     Route: 048
     Dates: start: 20200614, end: 20210907
  6. POTASSIUM CHLORIDE [Concomitant]
     Active Substance: POTASSIUM CHLORIDE
     Dosage: 750 MILLIGRAM
     Route: 048
     Dates: start: 20200617, end: 20210903
  7. FUROSEMIDE [Concomitant]
     Active Substance: FUROSEMIDE
     Dosage: 40 MILLIGRAM
     Route: 048
     Dates: start: 20121031, end: 20210907
  8. TOVIAZ [Concomitant]
     Active Substance: FESOTERODINE FUMARATE
     Dosage: 4 MILLIGRAM
     Route: 048
     Dates: start: 20091028, end: 20210603
  9. ALFUZOSIN [Concomitant]
     Active Substance: ALFUZOSIN
     Dosage: 10 MILLIGRAM
     Route: 048
     Dates: start: 20140101, end: 20210907
  10. LANSOPRAZOLE [Concomitant]
     Active Substance: LANSOPRAZOLE
     Dosage: 30 MILLIGRAM
     Route: 048
     Dates: start: 20100126, end: 20210907
  11. NITROGLYCERIN [Concomitant]
     Active Substance: NITROGLYCERIN
     Dosage: 0.4 MILLIGRAM
     Route: 060
     Dates: start: 2010, end: 20210907

REACTIONS (3)
  - Dementia with Lewy bodies [Recovered/Resolved]
  - Cardiopulmonary failure [Fatal]
  - Pituitary tumour [Recovered/Resolved]

NARRATIVE: CASE EVENT DATE: 20210106
